FAERS Safety Report 23738651 (Version 2)
Quarter: 2024Q2

REPORT INFORMATION
  Report Type: Report from Study
  Country: US (occurrence: US)
  Receive Date: 20240412
  Receipt Date: 20240417
  Transmission Date: 20240716
  Serious: Yes (Hospitalization)
  Sender: FDA-Public Use
  Company Number: US-ABBVIE-5713626

PATIENT
  Age: 38 Year
  Sex: Female

DRUGS (2)
  1. RINVOQ [Suspect]
     Active Substance: UPADACITINIB
     Indication: Colitis ulcerative
     Dosage: STRENGTH: 45 MG
     Route: 048
     Dates: start: 202306, end: 202307
  2. RINVOQ [Suspect]
     Active Substance: UPADACITINIB
     Indication: Colitis ulcerative
     Dosage: STRENGTH: 30 MG
     Route: 048
     Dates: start: 202307

REACTIONS (8)
  - Dehydration [Recovering/Resolving]
  - Decreased appetite [Unknown]
  - Colitis ulcerative [Recovering/Resolving]
  - Fatigue [Unknown]
  - Abdominal distension [Unknown]
  - Nausea [Recovering/Resolving]
  - Asthenia [Unknown]
  - Feeding disorder [Recovering/Resolving]

NARRATIVE: CASE EVENT DATE: 20240401
